FAERS Safety Report 9475835 (Version 1)
Quarter: 2013Q3

REPORT INFORMATION
  Report Type: Spontaneous
  Country: US (occurrence: US)
  Receive Date: 20130826
  Receipt Date: 20130826
  Transmission Date: 20140515
  Serious: No
  Sender: FDA-Public Use
  Company Number: US-PFIZER INC-2013244543

PATIENT
  Age: 65 Year
  Sex: Female
  Weight: 51.25 kg

DRUGS (3)
  1. PRISTIQ [Suspect]
     Indication: AGITATED DEPRESSION
     Dosage: 50 MG, 1X/DAY
     Route: 048
     Dates: start: 2008
  2. CLONAZEPAM [Concomitant]
     Indication: AGITATED DEPRESSION
     Dosage: UNK
  3. SEROQUEL [Concomitant]
     Indication: AGITATED DEPRESSION
     Dosage: UNK

REACTIONS (4)
  - Dizziness [Unknown]
  - Drug effect incomplete [Unknown]
  - Medication residue present [Unknown]
  - Fatigue [Unknown]
